FAERS Safety Report 7445634-5 (Version None)
Quarter: 2011Q2

REPORT INFORMATION
  Report Type: 
  Country: None (occurrence: None)
  Receive Date: 20110429
  Receipt Date: 20110419
  Transmission Date: 20111010
  Serious: Yes (Other)
  Sender: FDA-Public Use
  Company Number: GR-ROCHE-773706

PATIENT

DRUGS (1)
  1. CEFTRIAXONE SODIUM [Suspect]
     Indication: OSTEOMYELITIS
     Dosage: FOR 14 DAYS.
     Route: 065

REACTIONS (1)
  - CHOLELITHIASIS [None]
